FAERS Safety Report 5734341-2 (Version None)
Quarter: 2008Q2

REPORT INFORMATION
  Report Type: 
  Country: None (occurrence: None)
  Receive Date: 20080512
  Receipt Date: 20080507
  Transmission Date: 20081010
  Serious: Yes (Hospitalization, Other)
  Sender: FDA-Public Use
  Company Number: US-ELI_LILLY_AND_COMPANY-US200801004367

PATIENT
  Sex: Male
  Weight: 68.027 kg

DRUGS (13)
  1. ZYPREXA [Suspect]
     Indication: SCHIZOPHRENIA
     Dosage: UNK, UNK
     Dates: start: 20000101, end: 20060601
  2. ZYPREXA [Suspect]
     Dosage: 2.5 MG, UNK
  3. ZYPREXA [Suspect]
     Dosage: 5 MG, UNK
  4. ZYPREXA [Suspect]
     Dosage: 10 MG, UNK
  5. ZYPREXA [Suspect]
     Dosage: 15 MG, UNK
  6. ZOLOFT [Concomitant]
     Dates: start: 20060101
  7. RISPERDAL [Concomitant]
     Dates: start: 20060101
  8. TYLENOL                                 /SCH/ [Concomitant]
  9. PEPCID [Concomitant]
  10. PHENERGAN [Concomitant]
  11. DILAUDID [Concomitant]
  12. SEROQUEL [Concomitant]
     Dates: start: 20060101
  13. HALDOL [Concomitant]
     Dates: start: 19980101, end: 20000101

REACTIONS (2)
  - HAEMATOCHEZIA [None]
  - PANCREATITIS [None]
